FAERS Safety Report 25529577 (Version 1)
Quarter: 2025Q3

REPORT INFORMATION
  Report Type: Spontaneous
  Country: US (occurrence: None)
  Receive Date: 20250704
  Receipt Date: 20250704
  Transmission Date: 20251021
  Serious: Yes (Other)
  Sender: FDA-CTU
  Company Number: None

PATIENT
  Age: 39 Year
  Sex: Male
  Weight: 83 kg

DRUGS (1)
  1. PREDNISONE [Suspect]
     Active Substance: PREDNISONE
     Indication: Nasal congestion
     Route: 048
     Dates: start: 20250107, end: 20250307

REACTIONS (1)
  - Visual impairment [None]

NARRATIVE: CASE EVENT DATE: 20250206
